FAERS Safety Report 7699008-2 (Version None)
Quarter: 2011Q3

REPORT INFORMATION
  Report Type: 
  Country: None (occurrence: None)
  Receive Date: 20110819
  Receipt Date: 20110812
  Transmission Date: 20111222
  Serious: Yes (Disabling)
  Sender: FDA-Public Use
  Company Number: US-CEPHALON-2011003051

PATIENT
  Sex: Female
  Weight: 64 kg

DRUGS (4)
  1. CLONAZEPAM [Concomitant]
     Indication: AGITATION
  2. METFORMIN HYDROCHLORIDE [Concomitant]
  3. NUVIGIL [Suspect]
     Route: 048
     Dates: start: 20110509, end: 20110524
  4. QUETIAPINE [Suspect]
     Dates: start: 20110501, end: 20110601

REACTIONS (4)
  - OEDEMA [None]
  - HYPERGLYCAEMIA [None]
  - THIRST [None]
  - MUSCLE SPASMS [None]
